FAERS Safety Report 4397610-7 (Version None)
Quarter: 2004Q3

REPORT INFORMATION
  Report Type: 
  Country: None (occurrence: None)
  Receive Date: 20040708
  Receipt Date: 20040625
  Transmission Date: 20050211
  Serious: Yes (Hospitalization, Other)
  Sender: FDA-Public Use
  Company Number: IE-2004-027428

PATIENT
  Age: 38 Year
  Sex: Male
  Weight: 80 kg

DRUGS (1)
  1. ULTRAVIST 300 [Suspect]
     Indication: COMPUTERISED TOMOGRAM
     Dosage: 140 ML, 1 DOSE, INTRAVENOUS
     Route: 042
     Dates: start: 20040528, end: 20040528

REACTIONS (18)
  - CARDIO-RESPIRATORY ARREST [None]
  - CHILLS [None]
  - CONVULSION [None]
  - DEFAECATION URGENCY [None]
  - DEPRESSED LEVEL OF CONSCIOUSNESS [None]
  - DYSPNOEA [None]
  - FAECAL INCONTINENCE [None]
  - FLUSHING [None]
  - GENERALISED OEDEMA [None]
  - HYPERHIDROSIS [None]
  - HYPOTENSION [None]
  - IRRITABILITY [None]
  - MICTURITION URGENCY [None]
  - PULSE PRESSURE DECREASED [None]
  - SNEEZING [None]
  - SWELLING FACE [None]
  - URINARY INCONTINENCE [None]
  - WHEEZING [None]
